FAERS Safety Report 18381188 (Version 1)
Quarter: 2020Q4

REPORT INFORMATION
  Report Type: Spontaneous
  Country: GB (occurrence: GB)
  Receive Date: 20201014
  Receipt Date: 20201014
  Transmission Date: 20210114
  Serious: Yes (Disabling)
  Sender: FDA-Public Use
  Company Number: GB-TEVA-2020-GB-1837634

PATIENT
  Age: 86 Year
  Sex: Female
  Weight: 69 kg

DRUGS (18)
  1. CIPROFLOXACIN. [Suspect]
     Active Substance: CIPROFLOXACIN
     Dosage: UNIT DOSE : 500 MG
     Dates: start: 20200907
  2. GLYCEROL [Concomitant]
     Active Substance: GLYCERIN
     Dosage: INSERT, UNIT DOSE : 1 DOSAGE FORMS
     Dates: start: 20140502
  3. NYSTATIN. [Concomitant]
     Active Substance: NYSTATIN
     Dosage: UNIT DOSE : 4 ML
     Dates: start: 20200821
  4. ACETYLSALICYLIC ACID [Concomitant]
     Active Substance: ASPIRIN
     Dosage: UNIT DOSE : 1 DOSAGE FORMS
     Dates: start: 20200828
  5. PARACETAMOL [Concomitant]
     Active Substance: ACETAMINOPHEN
     Dosage: 1 OR 2 TO BE TAKEN TWICE TO FOUR TIMES A DAY
     Dates: start: 20200317
  6. APIXABAN [Concomitant]
     Active Substance: APIXABAN
     Dosage: UNIT DOSE : 2 DOSAGE FORMS
     Dates: start: 20200817
  7. ROSUVASTATIN. [Concomitant]
     Active Substance: ROSUVASTATIN
     Dosage: UNIT DOSE : 1 DOSAGE FORMS
     Dates: start: 20200828
  8. ESOMEPRAZOLE. [Concomitant]
     Active Substance: ESOMEPRAZOLE MAGNESIUM
     Dosage: NEEDS REVIEW AFTER 1 MONTH - P., UNIT DOSE : 1 DOSAGE FORMS
     Dates: start: 20200821
  9. BUMETANIDE. [Concomitant]
     Active Substance: BUMETANIDE
     Dosage: FOR 2 WEEKS THEN REVIEW, UNIT DOSE : 2 DOSAGE FORMS
     Dates: start: 20200821
  10. CALCIUM CARBONATE. [Concomitant]
     Active Substance: CALCIUM CARBONATE
     Dosage: UNIT DOSE : 2 DOSAGE FORMS
     Dates: start: 20180323
  11. MACROGOL [Concomitant]
     Active Substance: POLYETHYLENE GLYCOLS
     Indication: CONSTIPATION
     Dosage: TAKE 0-3 SACHETS DAILY TO KEEP MOTIONS SOFT AS .
     Dates: start: 20180323
  12. FUROSEMIDE. [Concomitant]
     Active Substance: FUROSEMIDE
     Indication: PERIPHERAL SWELLING
     Dosage: 2 DOSAGE FORMS DAILY; IN THE MORNING
     Dates: start: 20200619, end: 20200717
  13. SODIUM CHLORIDE SOLUTION 0.9% [Concomitant]
     Active Substance: SODIUM CHLORIDE
     Dosage: USE AS DIRECTED
     Dates: start: 20200716, end: 20200717
  14. LEVOTHYROXINE. [Concomitant]
     Active Substance: LEVOTHYROXINE
     Dosage: 1 DOSAGE FORMS DAILY; IN THE MORNING
     Dates: start: 20180323
  15. DICLOFENAC DIETHYLAMINE [Concomitant]
     Active Substance: DICLOFENAC DIETHYLAMINE
     Dosage: APPLY WHEN REQUIRED, UNIT DOSE : 3 DOSAGE FORMS
     Dates: start: 20181025
  16. HYLO-FORTE [Concomitant]
     Active Substance: HYALURONATE SODIUM
     Dosage: USE AS DIRECTED
     Dates: start: 20190603
  17. CETIRIZINE [Concomitant]
     Active Substance: CETIRIZINE HYDROCHLORIDE
     Dosage: UNIT DOSE : 1 DOSAGE FORMS
     Dates: start: 20170130
  18. REVAXIS [Concomitant]
     Active Substance: DIPHTHERIA AND TETANUS TOXOIDS AND POLIOVIRUS VACCINE ANTIGENS
     Dosage: USE AS DIRECTED
     Dates: start: 20200723, end: 20200728

REACTIONS (2)
  - Palpitations [Recovering/Resolving]
  - Pruritus [Recovering/Resolving]

NARRATIVE: CASE EVENT DATE: 20200909
